FAERS Safety Report 16127617 (Version 2)
Quarter: 2019Q2

REPORT INFORMATION
  Report Type: Spontaneous
  Country: US (occurrence: US)
  Receive Date: 20190328
  Receipt Date: 20190404
  Transmission Date: 20190711
  Serious: No
  Sender: FDA-Public Use
  Company Number: US-PFIZER INC-2019135666

PATIENT
  Sex: Female
  Weight: 104.3 kg

DRUGS (7)
  1. LATANOPROST. [Suspect]
     Active Substance: LATANOPROST
     Indication: VISUAL IMPAIRMENT
     Dosage: 1 GTT, 1X/DAY(ONE DROP IN EACH PER NIGHT)
  2. BRIMONIDINE TARTRATE. [Suspect]
     Active Substance: BRIMONIDINE TARTRATE
     Indication: GLAUCOMA
     Dosage: 2 GTT, 3X/DAY (1 DROP BOTH EYES, THREE TIMES A DAY)
     Route: 047
  3. DORZOLAMIDE HYDROCHLORIDE AND TIMOLOL MALEATE [Suspect]
     Active Substance: DORZOLAMIDE HYDROCHLORIDE\TIMOLOL MALEATE
     Indication: GLAUCOMA
     Dosage: 2 GTT, 2X/DAY (ONE DROP TWICE PER DAY BOTH EYES)
     Route: 047
  4. BRIMONIDINE TARTRATE. [Suspect]
     Active Substance: BRIMONIDINE TARTRATE
     Indication: CATARACT
  5. LATANOPROST. [Suspect]
     Active Substance: LATANOPROST
     Indication: GLAUCOMA
  6. LATANOPROST. [Suspect]
     Active Substance: LATANOPROST
     Indication: CATARACT
  7. DORZOLAMIDE HYDROCHLORIDE AND TIMOLOL MALEATE [Suspect]
     Active Substance: DORZOLAMIDE HYDROCHLORIDE\TIMOLOL MALEATE
     Indication: CATARACT

REACTIONS (4)
  - Hypersensitivity [Unknown]
  - Throat irritation [Unknown]
  - Eye pruritus [Unknown]
  - Drug ineffective [Unknown]
